FAERS Safety Report 18404834 (Version 2)
Quarter: 2020Q4

REPORT INFORMATION
  Report Type: Spontaneous
  Country: None (occurrence: IE)
  Receive Date: 20201020
  Receipt Date: 20201027
  Transmission Date: 20210114
  Serious: Yes (Other)
  Sender: FDA-Public Use
  Company Number: IE-HORIZON-2020HZN00160

PATIENT
  Age: 39 Year
  Sex: Male

DRUGS (1)
  1. VIMOVO [Suspect]
     Active Substance: ESOMEPRAZOLE MAGNESIUM\NAPROXEN
     Indication: NECK PAIN
     Dosage: 500 MG /20 MG
     Route: 048
     Dates: start: 20200930, end: 20201001

REACTIONS (3)
  - Syncope [Unknown]
  - Spinal cord compression [Unknown]
  - Muscular weakness [Unknown]

NARRATIVE: CASE EVENT DATE: 20201001
